FAERS Safety Report 20066778 (Version 1)
Quarter: 2021Q4

REPORT INFORMATION
  Report Type: Report from Study
  Country: US (occurrence: US)
  Receive Date: 20211115
  Receipt Date: 20211115
  Transmission Date: 20220303
  Serious: Yes (Other)
  Sender: FDA-Public Use
  Company Number: US-ABBVIE-21K-163-4157144-00

PATIENT
  Sex: Male

DRUGS (2)
  1. SKYRIZI [Suspect]
     Active Substance: RISANKIZUMAB-RZAA
     Indication: Psoriasis
     Route: 058
  2. COVID-19 VACCINE [Concomitant]
     Indication: COVID-19 immunisation
     Dosage: JOHNSON + JOHNSON
     Route: 030

REACTIONS (6)
  - Pneumothorax [Unknown]
  - Cerebral haemorrhage [Unknown]
  - Road traffic accident [Recovering/Resolving]
  - Spinal fracture [Unknown]
  - Rib fracture [Unknown]
  - Contusion [Unknown]
